FAERS Safety Report 7595538-2 (Version None)
Quarter: 2011Q3

REPORT INFORMATION
  Report Type: 
  Country: None (occurrence: None)
  Receive Date: 20110707
  Receipt Date: 20110615
  Transmission Date: 20111222
  Serious: Yes (Death, Hospitalization)
  Sender: FDA-Public Use
  Company Number: US-GLAXOSMITHKLINE-A0869756A

PATIENT
  Age: 58 Year
  Sex: Male
  Weight: 122.7 kg

DRUGS (13)
  1. SOMA [Concomitant]
  2. METFORMIN HCL [Concomitant]
  3. LEVOXYL [Concomitant]
  4. AVANDIA [Suspect]
     Indication: DIABETES MELLITUS
     Dosage: 4MG PER DAY
     Route: 048
     Dates: end: 20070101
  5. HYDROCODONE BITARTRATE [Concomitant]
  6. CIMETIDINE [Concomitant]
  7. TRIAMTERENE AND HYDROCHLOROTHIAZIDE [Concomitant]
  8. AMITRIPTYLINE HCL [Concomitant]
  9. GLYBURIDE [Concomitant]
  10. SIMVASTATIN [Concomitant]
  11. ZETIA [Concomitant]
  12. LOPID [Concomitant]
  13. LISINOPRIL [Concomitant]

REACTIONS (3)
  - MYOCARDIAL INFARCTION [None]
  - CORONARY ARTERY DISEASE [None]
  - ARTERIOSCLEROSIS [None]
